FAERS Safety Report 22332821 (Version 1)
Quarter: 2023Q2

REPORT INFORMATION
  Report Type: Report from Study
  Country: US (occurrence: US)
  Receive Date: 20230517
  Receipt Date: 20230517
  Transmission Date: 20230721
  Serious: No
  Sender: FDA-Public Use
  Company Number: US-SAGE-2023SAGE000043

PATIENT
  Age: 33 Year
  Sex: Female

DRUGS (1)
  1. ZULRESSO [Suspect]
     Active Substance: BREXANOLONE
     Indication: Perinatal depression
     Dosage: UNK
     Route: 042
     Dates: start: 20230415, end: 20230417

REACTIONS (3)
  - Pruritus [Unknown]
  - Rash [Unknown]
  - Urticaria [Unknown]

NARRATIVE: CASE EVENT DATE: 20230401
